FAERS Safety Report 20647793 (Version 1)
Quarter: 2022Q1

REPORT INFORMATION
  Report Type: Report from Study
  Country: IN (occurrence: IN)
  Receive Date: 20220329
  Receipt Date: 20220329
  Transmission Date: 20220423
  Serious: Yes (Other)
  Sender: FDA-Public Use
  Company Number: IN-BRISTOL-MYERS SQUIBB COMPANY-2022-011142

PATIENT
  Age: 61 Year
  Sex: Female
  Weight: 80 kg

DRUGS (2)
  1. NIVOLUMAB [Suspect]
     Active Substance: NIVOLUMAB
     Indication: Squamous cell carcinoma of lung
     Dosage: 2WEEKLY
     Route: 042
     Dates: start: 20220119
  2. NIVOLUMAB\RELATLIMAB-RMBW [Suspect]
     Active Substance: NIVOLUMAB\RELATLIMAB-RMBW
     Indication: Squamous cell carcinoma of lung
     Dosage: 2WEEKLY
     Route: 042
     Dates: start: 20220119

REACTIONS (3)
  - Blood glucose decreased [Unknown]
  - Spinal cord injury [Unknown]
  - Dizziness [Unknown]
